FAERS Safety Report 8942329 (Version 1)
Quarter: 2012Q4

REPORT INFORMATION
  Report Type: Spontaneous
  Country: US (occurrence: None)
  Receive Date: 20121123
  Receipt Date: 20121123
  Transmission Date: 20130627
  Serious: Yes (Hospitalization)
  Sender: FDA-Public Use
  Company Number: DKLU1086445

PATIENT
  Age: 25 Month
  Sex: Male

DRUGS (2)
  1. SABRIL [Suspect]
     Dosage: , AM tablet)
     Dates: start: 20120825
  2. SABRIL [Suspect]
     Dosage: HS
     Dates: start: 20120825

REACTIONS (3)
  - Pneumonia [None]
  - Somnolence [None]
  - Sleep disorder [None]
